FAERS Safety Report 4991154-7 (Version None)
Quarter: 2006Q2

REPORT INFORMATION
  Report Type: 
  Country: None (occurrence: None)
  Receive Date: 20060428
  Receipt Date: 20060412
  Transmission Date: 20061013
  Serious: Yes (Hospitalization)
  Sender: FDA-Public Use
  Company Number: FR200604001944

PATIENT
  Age: 82 Year
  Sex: Female

DRUGS (6)
  1. FORTEO [Suspect]
     Indication: OSTEOPOROSIS
     Dosage: 20 UG, DAILY (1/D), SUBCUTANEOUS
     Route: 058
     Dates: start: 20050307
  2. FORTEO [Concomitant]
  3. HYZAAR [Concomitant]
  4. AMLODIPINE BESYLATE [Concomitant]
  5. ACETAMINOPHEN [Concomitant]
  6. OROCAL D(3) /MON/ (CALCIUM CARBONATE, COLECALCIFEROL) [Concomitant]

REACTIONS (3)
  - ALOPECIA [None]
  - DIZZINESS [None]
  - MALAISE [None]
